FAERS Safety Report 21450343 (Version 1)
Quarter: 2022Q4

REPORT INFORMATION
  Report Type: Spontaneous
  Country: FR (occurrence: FR)
  Receive Date: 20221013
  Receipt Date: 20221013
  Transmission Date: 20230112
  Serious: Yes (Hospitalization)
  Sender: FDA-Public Use
  Company Number: None

PATIENT

DRUGS (3)
  1. ATROPINE [Suspect]
     Active Substance: ATROPINE
     Indication: Cataract congenital
     Dosage: 1 DROP 2/D IN BOTH EYES
     Route: 047
     Dates: start: 202209
  2. PROPOFOL [Suspect]
     Active Substance: PROPOFOL
     Indication: Anaesthesia
     Dosage: UNK
     Route: 042
     Dates: start: 20220906
  3. TROPICAMIDE [Suspect]
     Active Substance: TROPICAMIDE
     Indication: Cataract congenital
     Dosage: 1 DROP 3/D
     Route: 047
     Dates: start: 202208

REACTIONS (2)
  - Pyramidal tract syndrome [Not Recovered/Not Resolved]
  - Anaesthetic complication neurological [Not Recovered/Not Resolved]

NARRATIVE: CASE EVENT DATE: 20220907
